FAERS Safety Report 11070347 (Version 3)
Quarter: 2015Q3

REPORT INFORMATION
  Report Type: Spontaneous
  Country: US (occurrence: US)
  Receive Date: 20150427
  Receipt Date: 20150730
  Transmission Date: 20151125
  Serious: Yes (Other)
  Sender: FDA-Public Use
  Company Number: US-TEVA-557978USA

PATIENT
  Age: 37 Year
  Sex: Female

DRUGS (4)
  1. METRONIDAZOLE. [Suspect]
     Active Substance: METRONIDAZOLE
     Indication: HELICOBACTER INFECTION
     Dosage: 1500 MILLIGRAM DAILY;
     Route: 048
     Dates: start: 20130116
  2. METRONIDAZOLE. [Suspect]
     Active Substance: METRONIDAZOLE
     Dosage: DOSE AND FREQUENCY NOT PROVIDED
     Route: 048
  3. AMOXICILLIN. [Concomitant]
     Active Substance: AMOXICILLIN
  4. PROTONIX [Concomitant]
     Active Substance: PANTOPRAZOLE SODIUM
     Indication: GASTRIC DISORDER

REACTIONS (17)
  - Feeding disorder [Unknown]
  - Crying [Not Recovered/Not Resolved]
  - Oral pain [Not Recovered/Not Resolved]
  - Mental impairment [Not Recovered/Not Resolved]
  - Candida infection [Not Recovered/Not Resolved]
  - Feeling abnormal [Not Recovered/Not Resolved]
  - Nervousness [Not Recovered/Not Resolved]
  - Cognitive disorder [Unknown]
  - Rash [Unknown]
  - Mouth injury [Unknown]
  - Tremor [Not Recovered/Not Resolved]
  - Gastritis [Unknown]
  - Tooth discolouration [Unknown]
  - Teeth brittle [Unknown]
  - Memory impairment [Unknown]
  - Anxiety [Not Recovered/Not Resolved]
  - Oral candidiasis [Unknown]

NARRATIVE: CASE EVENT DATE: 20130124
